FAERS Safety Report 19756237 (Version 2)
Quarter: 2021Q3

REPORT INFORMATION
  Report Type: Spontaneous
  Country: SE (occurrence: SE)
  Receive Date: 20210827
  Receipt Date: 20210909
  Transmission Date: 20211014
  Serious: Yes (Other)
  Sender: FDA-Public Use
  Company Number: SE-OTSUKA-2021_029332

PATIENT
  Sex: Male

DRUGS (5)
  1. ABILIFY MAINTENA [Suspect]
     Active Substance: ARIPIPRAZOLE
     Indication: AUTISM SPECTRUM DISORDER
     Dosage: UNK
     Route: 065
     Dates: start: 202003
  2. ABILIFY MAINTENA [Suspect]
     Active Substance: ARIPIPRAZOLE
     Indication: SCHIZOPHRENIA
  3. IKTORIVIL [Suspect]
     Active Substance: CLONAZEPAM
     Indication: SCHIZOPHRENIA
  4. IKTORIVIL [Suspect]
     Active Substance: CLONAZEPAM
     Indication: AUTISM SPECTRUM DISORDER
     Dosage: HOSPITAL THOUGHT IT WAS A SIDE EFFECT OF ABILIFY MAINTENA. WE THOUGHT THAT HE OVERDOSED ON IKTORIVIL
     Route: 065
  5. CISORDINOL DEPOT [Concomitant]
     Active Substance: ZUCLOPENTHIXOL
     Indication: PRODUCT USED FOR UNKNOWN INDICATION
     Dosage: 200 MG / ML 1 ML EVERY 2V
     Route: 065

REACTIONS (2)
  - Product use in unapproved indication [Unknown]
  - Epilepsy [Unknown]

NARRATIVE: CASE EVENT DATE: 202003
